FAERS Safety Report 7493675-4 (Version None)
Quarter: 2011Q2

REPORT INFORMATION
  Report Type: 
  Country: None (occurrence: None)
  Receive Date: 20110520
  Receipt Date: 20110512
  Transmission Date: 20111010
  Serious: No
  Sender: FDA-Public Use
  Company Number: US-PURDUE-USA-2010-0056529

PATIENT
  Sex: Male
  Weight: 96.599 kg

DRUGS (3)
  1. OXYCONTIN [Suspect]
     Indication: PAIN
     Dosage: 60 MG, BID
     Route: 048
     Dates: start: 20100706, end: 20101122
  2. OXYCONTIN [Suspect]
     Indication: FIBROMYALGIA
  3. OXYCONTIN [Suspect]
     Indication: EHLERS-DANLOS SYNDROME

REACTIONS (3)
  - PAIN [None]
  - DRUG INTOLERANCE [None]
  - INADEQUATE ANALGESIA [None]
